FAERS Safety Report 14013547 (Version 1)
Quarter: 2017Q3

REPORT INFORMATION
  Report Type: Report from Study
  Country: US (occurrence: US)
  Receive Date: 20170926
  Receipt Date: 20170926
  Transmission Date: 20171128
  Serious: Yes (Death)
  Sender: FDA-Public Use
  Company Number: US-PFIZER INC-2017415108

PATIENT
  Age: 52 Year
  Sex: Female

DRUGS (2)
  1. ACETAMINOPHEN. [Suspect]
     Active Substance: ACETAMINOPHEN
     Dosage: UNK
  2. LORAZEPAM. [Suspect]
     Active Substance: LORAZEPAM
     Dosage: UNK

REACTIONS (9)
  - Metabolic acidosis [Fatal]
  - Anion gap [Fatal]
  - Thrombocytopenia [Fatal]
  - Coma [Fatal]
  - Pancytopenia [Fatal]
  - Acute kidney injury [Fatal]
  - Hepatotoxicity [Fatal]
  - Hypotension [Fatal]
  - Toxicity to various agents [Fatal]
